FAERS Safety Report 14455930 (Version 2)
Quarter: 2018Q2

REPORT INFORMATION
  Report Type: Report from Study
  Country: US (occurrence: US)
  Receive Date: 20180130
  Receipt Date: 20180508
  Transmission Date: 20180711
  Serious: Yes (Death)
  Sender: FDA-Public Use
  Company Number: PHEH2018US002536

PATIENT
  Sex: Male

DRUGS (1)
  1. KISQALI [Suspect]
     Active Substance: RIBOCICLIB
     Indication: PRODUCT USED FOR UNKNOWN INDICATION
     Route: 065

REACTIONS (4)
  - Product use issue [Unknown]
  - Nasal congestion [Unknown]
  - Death [Fatal]
  - Influenza [Unknown]
